FAERS Safety Report 7149721-0 (Version None)
Quarter: 2010Q4

REPORT INFORMATION
  Report Type: 
  Country: None (occurrence: None)
  Receive Date: 20101210
  Receipt Date: 20101201
  Transmission Date: 20110411
  Serious: Yes (Other)
  Sender: FDA-Public Use
  Company Number: US-BIOGENIDEC-2010BI042096

PATIENT
  Age: 46 Year
  Sex: Female
  Weight: 108 kg

DRUGS (1)
  1. TYSABRI [Suspect]
     Indication: MULTIPLE SCLEROSIS
     Route: 042
     Dates: start: 20090602

REACTIONS (4)
  - BAND SENSATION [None]
  - BASAL CELL CARCINOMA [None]
  - CUBITAL TUNNEL SYNDROME [None]
  - FATIGUE [None]
